FAERS Safety Report 5787836-X (Version None)
Quarter: 2008Q2

REPORT INFORMATION
  Report Type: 
  Country: None (occurrence: None)
  Receive Date: 20080624
  Receipt Date: 20080624
  Transmission Date: 20081010
  Serious: No
  Sender: FDA-Public Use
  Company Number: None

PATIENT
  Sex: Female
  Weight: 67.8 kg

DRUGS (1)
  1. METHIMAZOLE 5 MG PAR [Suspect]
     Indication: HYPERTHYROIDISM
     Dosage: 5 MG ONCE DAILY PO
     Route: 048
     Dates: start: 20080530, end: 20080605

REACTIONS (2)
  - ABASIA [None]
  - PAIN IN EXTREMITY [None]
